FAERS Safety Report 23310473 (Version 1)
Quarter: 2023Q4

REPORT INFORMATION
  Report Type: Spontaneous
  Country: US (occurrence: US)
  Receive Date: 20231218
  Receipt Date: 20231218
  Transmission Date: 20240110
  Serious: No
  Sender: FDA-Public Use
  Company Number: US-FERRINGPH-2023FE05718

PATIENT
  Age: 66 Year

DRUGS (1)
  1. REBYOTA [Suspect]
     Active Substance: DONOR HUMAN STOOL
     Indication: Product used for unknown indication
     Dosage: UNK
     Route: 054
     Dates: start: 20231026

REACTIONS (2)
  - Clostridium difficile infection [Unknown]
  - Depressed mood [Not Recovered/Not Resolved]

NARRATIVE: CASE EVENT DATE: 20231001
